FAERS Safety Report 13048109 (Version 1)
Quarter: 2016Q4

REPORT INFORMATION
  Report Type: Spontaneous
  Country: US (occurrence: US)
  Receive Date: 20161220
  Receipt Date: 20161220
  Transmission Date: 20170207
  Serious: Yes (Disabling)
  Sender: FDA-Public Use
  Company Number: None

PATIENT
  Age: 43 Year
  Sex: Female
  Weight: 51.75 kg

DRUGS (2)
  1. IUD NOS [Concomitant]
     Active Substance: COPPER OR LEVONORGESTREL
  2. CIPRODEX [Suspect]
     Active Substance: CIPROFLOXACIN HYDROCHLORIDE\DEXAMETHASONE
     Indication: LABYRINTHITIS
     Dosage: ?          QUANTITY:2 DROP(S);?
     Route: 001
     Dates: start: 20161024, end: 20161027

REACTIONS (2)
  - Facial pain [None]
  - Pain in jaw [None]

NARRATIVE: CASE EVENT DATE: 20161031
